FAERS Safety Report 8287090-3 (Version None)
Quarter: 2012Q2

REPORT INFORMATION
  Report Type: 
  Country: None (occurrence: None)
  Receive Date: 20120416
  Receipt Date: 20120406
  Transmission Date: 20120825
  Serious: Yes (Hospitalization)
  Sender: FDA-Public Use
  Company Number: FR-ROCHE-1019595

PATIENT
  Sex: Female
  Weight: 56.069 kg

DRUGS (7)
  1. DILATRANE [Concomitant]
     Dates: start: 20030101, end: 20110701
  2. DESLORATADINE [Concomitant]
     Dates: start: 20030101, end: 20110701
  3. FLUTICASONE PROPIONATE/SALMETEROL [Concomitant]
     Dates: end: 20110601
  4. SINGULAIR [Concomitant]
     Dates: start: 20030101, end: 20110701
  5. XOLAIR [Suspect]
     Indication: ASTHMA
     Dates: start: 20080201, end: 20110601
  6. VENTOLIN [Concomitant]
     Dates: start: 20030101
  7. XOLAIR [Suspect]
     Dates: start: 20111201

REACTIONS (2)
  - ASTHMA [None]
  - MATERNAL EXPOSURE DURING PREGNANCY [None]
